FAERS Safety Report 5392721-1 (Version None)
Quarter: 2007Q3

REPORT INFORMATION
  Report Type: 
  Country: None (occurrence: None)
  Receive Date: 20070720
  Receipt Date: 20070710
  Transmission Date: 20080115
  Serious: Yes (Other)
  Sender: FDA-Public Use
  Company Number: GB-PFIZER INC-2006101864

PATIENT
  Age: 74 Year
  Sex: Female

DRUGS (12)
  1. CHLORAMPHENICOL [Suspect]
     Indication: CATARACT OPERATION
  2. PREDNISOLONE [Suspect]
     Indication: CATARACT OPERATION
     Route: 047
  3. PREDNISOLONE [Suspect]
  4. BUPIVACAINE [Suspect]
     Indication: LOCAL ANAESTHESIA
     Route: 065
  5. BUPIVACAINE [Suspect]
  6. CEFUROXIME [Suspect]
     Indication: POSTOPERATIVE CARE
     Route: 058
  7. HYALURONIDASE [Suspect]
     Indication: LOCAL ANAESTHESIA
  8. HYALURONIDASE [Suspect]
  9. LIDOCAINE [Suspect]
     Indication: LOCAL ANAESTHESIA
  10. LIDOCAINE [Suspect]
  11. POVIDONE IODINE [Concomitant]
     Route: 047
  12. PROPARACAINE HCL [Concomitant]
     Route: 047

REACTIONS (7)
  - CONJUNCTIVAL OEDEMA [None]
  - EXOPHTHALMOS [None]
  - EYE MOVEMENT DISORDER [None]
  - EYE SWELLING [None]
  - PAROPHTHALMIA [None]
  - PERIORBITAL FAT HERNIATION [None]
  - VISUAL ACUITY REDUCED [None]
